FAERS Safety Report 6885135-6 (Version None)
Quarter: 2010Q3

REPORT INFORMATION
  Report Type: 
  Country: None (occurrence: None)
  Receive Date: 20100729
  Receipt Date: 20080114
  Transmission Date: 20110219
  Serious: Yes (Other)
  Sender: FDA-Public Use
  Company Number: US-PFIZER INC-2007091207

PATIENT
  Sex: Female
  Weight: 156.81 kg

DRUGS (6)
  1. CELEBREX [Suspect]
     Indication: OSTEOARTHRITIS
     Route: 048
     Dates: end: 20070101
  2. BACTRIM [Suspect]
     Indication: URINARY TRACT INFECTION
     Dates: start: 20070601
  3. PLAVIX [Concomitant]
  4. ASPIRIN [Concomitant]
  5. TRAMADOL HYDROCHLORIDE [Concomitant]
  6. DURAGESIC-100 [Concomitant]

REACTIONS (7)
  - BLOOD CREATININE INCREASED [None]
  - ORAL CANDIDIASIS [None]
  - ORAL DISCOMFORT [None]
  - PAIN [None]
  - TRANSIENT ISCHAEMIC ATTACK [None]
  - URINARY TRACT INFECTION [None]
  - WEIGHT DECREASED [None]
